FAERS Safety Report 4869739-8 (Version None)
Quarter: 2005Q4

REPORT INFORMATION
  Report Type: 
  Country: None (occurrence: None)
  Receive Date: 20051223
  Receipt Date: 20051201
  Transmission Date: 20060501
  Serious: Yes (Other)
  Sender: FDA-Public Use
  Company Number: US200512000404

PATIENT
  Sex: Female

DRUGS (1)
  1. HUMATROPE [Suspect]
     Indication: POSTPARTUM HYPOPITUITARISM
     Dosage: 0.3 MG, DAILY (1/D

REACTIONS (2)
  - ACOUSTIC NEUROMA [None]
  - DEAFNESS [None]
